FAERS Safety Report 22196744 (Version 1)
Quarter: 2023Q2

REPORT INFORMATION
  Report Type: Spontaneous
  Country: US (occurrence: US)
  Receive Date: 20230411
  Receipt Date: 20230411
  Transmission Date: 20230721
  Serious: No
  Sender: FDA-Public Use
  Company Number: US-GLAXOSMITHKLINE-US2023AMR051413

PATIENT
  Sex: Female

DRUGS (2)
  1. ZEJULA [Suspect]
     Active Substance: NIRAPARIB
     Indication: Ovarian cancer
     Dosage: 100 MG, QD (2CAPSULES)
     Route: 048
     Dates: start: 202207
  2. 5-HTP [Concomitant]
     Indication: Product used for unknown indication
     Dosage: 100 MG

REACTIONS (4)
  - Constipation [Unknown]
  - Full blood count abnormal [Unknown]
  - Insomnia [Recovered/Resolved]
  - Anxiety [Unknown]
